FAERS Safety Report 20579460 (Version 2)
Quarter: 2022Q2

REPORT INFORMATION
  Report Type: Spontaneous
  Country: DK (occurrence: DK)
  Receive Date: 20220310
  Receipt Date: 20220627
  Transmission Date: 20220721
  Serious: Yes (Other)
  Sender: FDA-Public Use
  Company Number: DK-002147023-NVSC2022DK040640

PATIENT
  Age: 74 Year
  Sex: Female

DRUGS (3)
  1. AMLODIPINE BESYLATE [Suspect]
     Active Substance: AMLODIPINE BESYLATE
     Indication: Hypertension
     Dosage: 5 MG
     Route: 065
  2. HYDROCHLOROTHIAZIDE\LOSARTAN POTASSIUM [Concomitant]
     Active Substance: HYDROCHLOROTHIAZIDE\LOSARTAN POTASSIUM
     Indication: Hypertension
     Dosage: UNK
     Route: 065
     Dates: end: 20220113
  3. BENDROFLUMETHIAZIDE [Concomitant]
     Active Substance: BENDROFLUMETHIAZIDE
     Indication: Hypertension
     Dosage: UNK
     Route: 065

REACTIONS (7)
  - Seizure [Unknown]
  - Tremor [Unknown]
  - Face oedema [Unknown]
  - Oedema peripheral [Unknown]
  - Dyspnoea [Unknown]
  - Paraesthesia [Unknown]
  - Hypertension [Unknown]
